FAERS Safety Report 19721702 (Version 1)
Quarter: 2021Q3

REPORT INFORMATION
  Report Type: Spontaneous
  Country: US (occurrence: US)
  Receive Date: 20210819
  Receipt Date: 20210819
  Transmission Date: 20211014
  Serious: Yes (Other)
  Sender: FDA-Public Use
  Company Number: NVSC2021US182101

PATIENT
  Sex: Male

DRUGS (6)
  1. PROVENGE [Suspect]
     Active Substance: SIPULEUCEL-T
     Indication: METASTASES TO BONE
     Dosage: UNK
     Route: 065
  2. XOFIGO [Suspect]
     Active Substance: RADIUM RA-223 DICHLORIDE
     Indication: METASTASES TO BONE
     Dosage: UNK
     Route: 065
  3. DOCETAXEL. [Suspect]
     Active Substance: DOCETAXEL
     Indication: METASTASES TO BONE
     Dosage: UNK (FOR CYCLES)
     Route: 065
  4. ZYTIGA [Suspect]
     Active Substance: ABIRATERONE ACETATE
     Indication: METASTASES TO BONE
     Dosage: UNK
     Route: 065
  5. OLAPARIB. [Suspect]
     Active Substance: OLAPARIB
     Indication: METASTASES TO BONE
     Dosage: UNK
     Route: 065
  6. CABAZITAXEL [Suspect]
     Active Substance: CABAZITAXEL
     Indication: METASTASES TO BONE
     Dosage: UNK
     Route: 065

REACTIONS (4)
  - Condition aggravated [Unknown]
  - Treatment failure [Unknown]
  - Peripheral swelling [Unknown]
  - Lymphadenopathy [Unknown]
